FAERS Safety Report 18711078 (Version 1)
Quarter: 2021Q1

REPORT INFORMATION
  Report Type: Spontaneous
  Country: US (occurrence: US)
  Receive Date: 20210106
  Receipt Date: 20210106
  Transmission Date: 20210419
  Serious: Yes (Hospitalization)
  Sender: FDA-Public Use
  Company Number: None

PATIENT
  Age: 70 Year
  Sex: Male
  Weight: 94.5 kg

DRUGS (7)
  1. VITAMINS [Concomitant]
     Active Substance: VITAMINS
  2. BAMLANIVIMAB. [Suspect]
     Active Substance: BAMLANIVIMAB
     Indication: COVID-19
     Route: 058
     Dates: start: 20201216, end: 20201216
  3. PREDNISONE 10MG [Concomitant]
     Active Substance: PREDNISONE
  4. TUMERIC [Concomitant]
     Active Substance: HERBALS\TURMERIC
  5. PROBIOTIC [Concomitant]
     Active Substance: PROBIOTICS NOS
  6. FISH OIL [Concomitant]
     Active Substance: FISH OIL
  7. CALCIUM [Concomitant]
     Active Substance: CALCIUM

REACTIONS (2)
  - Loss of consciousness [None]
  - Infusion related reaction [None]

NARRATIVE: CASE EVENT DATE: 20201216
